FAERS Safety Report 5939047-2 (Version None)
Quarter: 2008Q4

REPORT INFORMATION
  Report Type: 
  Country: None (occurrence: None)
  Receive Date: 20081103
  Receipt Date: 20081023
  Transmission Date: 20090506
  Serious: Yes (Death)
  Sender: FDA-Public Use
  Company Number: JP-SANOFI-SYNTHELABO-F01200801660

PATIENT
  Sex: Male
  Weight: 68 kg

DRUGS (2)
  1. AMLODIN [Concomitant]
     Indication: HYPERTENSION
     Dosage: 5 MG
     Route: 048
     Dates: start: 20070829
  2. CLOPIDOGREL [Suspect]
     Indication: LACUNAR INFARCTION
     Route: 048
     Dates: start: 20070829

REACTIONS (1)
  - ADVERSE REACTION [None]
